FAERS Safety Report 8561320-2 (Version None)
Quarter: 2012Q3

REPORT INFORMATION
  Report Type: 
  Country: None (occurrence: None)
  Receive Date: 20120802
  Receipt Date: 20120726
  Transmission Date: 20120928
  Serious: Yes (Hospitalization)
  Sender: FDA-Public Use
  Company Number: JP-VERTEX PHARMACEUTICALS INC.-AE-2012-008228

PATIENT
  Age: 47 Year
  Sex: Female

DRUGS (10)
  1. TELAVIC (TELAPREVIR) [Suspect]
     Indication: HEPATITIS C
     Route: 048
     Dates: start: 20120412, end: 20120423
  2. PEG-INTRON [Concomitant]
     Route: 058
     Dates: end: 20120531
  3. TELAVIC (TELAPREVIR) [Suspect]
     Route: 048
     Dates: start: 20120425, end: 20120506
  4. TELAVIC (TELAPREVIR) [Suspect]
     Route: 048
     Dates: start: 20120511, end: 20120522
  5. REBETOL [Concomitant]
     Indication: HEPATITIS C
     Route: 048
     Dates: start: 20120412, end: 20120425
  6. REBETOL [Concomitant]
     Route: 048
     Dates: start: 20120426, end: 20120530
  7. PEG-INTRON [Concomitant]
     Indication: HEPATITIS C
     Route: 058
     Dates: start: 20120412, end: 20120524
  8. REBETOL [Concomitant]
     Route: 058
     Dates: start: 20120608
  9. PEG-INTRON [Concomitant]
     Route: 058
     Dates: start: 20120607
  10. REBETOL [Concomitant]
     Route: 048
     Dates: end: 20120607

REACTIONS (2)
  - ERYTHEMA [None]
  - RASH [None]
